FAERS Safety Report 9923947 (Version 2)
Quarter: 2014Q1

REPORT INFORMATION
  Report Type: Spontaneous
  Country: US (occurrence: US)
  Receive Date: 20140225
  Receipt Date: 20140314
  Transmission Date: 20141002
  Serious: No
  Sender: FDA-Public Use
  Company Number: US-RB-063741-14

PATIENT
  Age: 41 Year
  Sex: Male

DRUGS (6)
  1. SUBOXONE FILM [Suspect]
     Dosage: SUBOXONE FILM
     Route: 060
     Dates: start: 2012, end: 2013
  2. SUBOXONE FILM [Suspect]
     Indication: DRUG DEPENDENCE
     Dosage: SUBOXONE FILM
     Route: 060
     Dates: start: 2013, end: 201402
  3. SUBOXONE FILM [Suspect]
     Dosage: SUBOXONE FILM; THE PATIENT WAS USING 1/2 STRIP
     Route: 060
     Dates: start: 201402, end: 20140212
  4. SUBOXONE FILM [Suspect]
     Dosage: SUBOXONE FILM
     Route: 060
     Dates: start: 20140214
  5. EFFEXOR [Concomitant]
     Indication: CATAPLEXY
     Dosage: DOSING DETAILS UNKNOWN
     Route: 048
  6. NICOTINE [Concomitant]
     Indication: PRODUCT USED FOR UNKNOWN INDICATION
     Dosage: 1 PACKET OF CIGARETTES DAILY
     Route: 055

REACTIONS (5)
  - Drug withdrawal syndrome [Recovered/Resolved]
  - Intentional underdose [Recovered/Resolved]
  - Wrong technique in drug usage process [Recovered/Resolved]
  - Chest pain [Recovered/Resolved]
  - Malaise [Recovered/Resolved]
